FAERS Safety Report 18761492 (Version 1)
Quarter: 2021Q1

REPORT INFORMATION
  Report Type: Spontaneous
  Country: US (occurrence: US)
  Receive Date: 20210119
  Receipt Date: 20210119
  Transmission Date: 20210419
  Serious: Yes (Other)
  Sender: FDA-Public Use
  Company Number: None

PATIENT
  Age: 51 Year
  Sex: Female
  Weight: 113.4 kg

DRUGS (2)
  1. VIVITROL [Concomitant]
     Active Substance: NALTREXONE
     Dates: start: 20210105
  2. VIVITROL [Suspect]
     Active Substance: NALTREXONE
     Indication: DRUG DEPENDENCE
     Route: 030
     Dates: start: 20210105

REACTIONS (1)
  - Injection site pain [None]

NARRATIVE: CASE EVENT DATE: 20210114
